FAERS Safety Report 9224989 (Version 1)
Quarter: 2013Q2

REPORT INFORMATION
  Report Type: Spontaneous
  Country: US (occurrence: US)
  Receive Date: 20130411
  Receipt Date: 20130411
  Transmission Date: 20140414
  Serious: Yes (Other)
  Sender: FDA-Public Use
  Company Number: US-PFIZER INC-2013111932

PATIENT
  Age: 58 Year
  Sex: Female
  Weight: 70.3 kg

DRUGS (6)
  1. LYRICA [Suspect]
     Indication: FIBROMYALGIA
     Dosage: 100 MG, 3X/DAY
     Route: 048
     Dates: start: 201304
  2. FOLIC ACID [Concomitant]
     Dosage: UNK
  3. PROZAC [Concomitant]
     Dosage: UNK
  4. SYNTHROID [Concomitant]
     Dosage: UNK
  5. XANAX [Concomitant]
     Dosage: UNK
  6. DICYCLOMINE [Concomitant]
     Dosage: UNK

REACTIONS (7)
  - Depression [Unknown]
  - Panic attack [Unknown]
  - Anxiety [Unknown]
  - Feeling drunk [Recovered/Resolved]
  - Abnormal dreams [Recovered/Resolved]
  - Gait disturbance [Recovered/Resolved]
  - Balance disorder [Recovered/Resolved]
